FAERS Safety Report 7424451-6 (Version None)
Quarter: 2011Q2

REPORT INFORMATION
  Report Type: 
  Country: None (occurrence: None)
  Receive Date: 20110419
  Receipt Date: 20110405
  Transmission Date: 20111010
  Serious: Yes (Hospitalization)
  Sender: FDA-Public Use
  Company Number: US-CELGENEUS-163-C5013-11040412

PATIENT
  Sex: Male
  Weight: 70.37 kg

DRUGS (7)
  1. TOPROL-XL [Concomitant]
     Indication: HYPERTENSION
     Route: 048
     Dates: start: 20110322
  2. ASPIRIN [Concomitant]
     Indication: THROMBOSIS PROPHYLAXIS
     Dosage: 81 MILLIGRAM
     Route: 048
     Dates: start: 20110322
  3. VASOTEC [Concomitant]
     Indication: HYPERTENSION
     Route: 048
     Dates: start: 20110324
  4. CIPRO [Concomitant]
     Dosage: 250 MILLIGRAM
     Route: 048
     Dates: start: 20110322
  5. DOCETAXEL [Suspect]
     Indication: PROSTATE CANCER
     Dosage: 137 MILLIGRAM
     Route: 048
     Dates: start: 20110329, end: 20110329
  6. PREDNISONE TAB [Suspect]
     Indication: PROSTATE CANCER
     Dosage: 5 MILLIGRAM
     Route: 065
     Dates: start: 20110329, end: 20110329
  7. CC-5013\PLACEBO [Suspect]
     Indication: PROSTATE CANCER
     Dosage: 25 MILLIGRAM
     Route: 048
     Dates: start: 20110329, end: 20110403

REACTIONS (4)
  - ARTHRALGIA [None]
  - SYNCOPE [None]
  - COLITIS [None]
  - PNEUMONIA [None]
